FAERS Safety Report 15865335 (Version 2)
Quarter: 2020Q1

REPORT INFORMATION
  Report Type: Other
  Country: US (occurrence: US)
  Receive Date: 20190124
  Receipt Date: 20200126
  Transmission Date: 20200409
  Serious: No
  Sender: FDA-Public Use
  Company Number: US-ACORDA-ACO_156103_2018

PATIENT
  Age: 57 Year
  Sex: Female

DRUGS (2)
  1. AMPYRA [Suspect]
     Active Substance: DALFAMPRIDINE
     Indication: MULTIPLE SCLEROSIS
  2. AMPYRA [Suspect]
     Active Substance: DALFAMPRIDINE
     Indication: GAIT DISTURBANCE
     Dosage: 10 MILLIGRAM, BID
     Route: 048
     Dates: start: 20181121, end: 20190109

REACTIONS (5)
  - Back pain [Not Recovered/Not Resolved]
  - Therapeutic response unexpected [Unknown]
  - Drug ineffective [Unknown]
  - Euphoric mood [Unknown]
  - Energy increased [Unknown]

NARRATIVE: CASE EVENT DATE: 20181201
